FAERS Safety Report 8725907 (Version 3)
Quarter: 2013Q3

REPORT INFORMATION
  Report Type: Spontaneous
  Country: US (occurrence: US)
  Receive Date: 20120816
  Receipt Date: 20130826
  Transmission Date: 20140515
  Serious: Yes (Hospitalization, Other)
  Sender: FDA-Public Use
  Company Number: US-BIOGENIDEC-2012BI029747

PATIENT
  Age: 57 Year
  Sex: Female

DRUGS (1)
  1. AVONEX [Suspect]
     Indication: MULTIPLE SCLEROSIS
     Route: 030
     Dates: start: 20120203, end: 20120728

REACTIONS (4)
  - Cardiomyopathy [Not Recovered/Not Resolved]
  - Cardiomegaly [Unknown]
  - Local swelling [Unknown]
  - Dyspnoea exertional [Unknown]
